FAERS Safety Report 15095127 (Version 1)
Quarter: 2018Q3

REPORT INFORMATION
  Report Type: Report from Study
  Country: IT (occurrence: IT)
  Receive Date: 20180702
  Receipt Date: 20180702
  Transmission Date: 20181010
  Serious: Yes (Hospitalization)
  Sender: FDA-Public Use
  Company Number: IT-TEVA-2018-IT-918151

PATIENT
  Age: 88 Year
  Sex: Female

DRUGS (9)
  1. KANRENOL? 25 COMPRESSE [Concomitant]
  2. CARVEDILOL. [Concomitant]
     Active Substance: CARVEDILOL
     Route: 048
  3. SOLDESAM [Concomitant]
     Active Substance: DEXAMETHASONE
     Route: 048
  4. TRITTICO 25 MG/ML GOCCE ORALI, SOLUZIONE [Concomitant]
     Active Substance: TRAZODONE HYDROCHLORIDE
     Route: 065
  5. ACTIQ [Suspect]
     Active Substance: FENTANYL CITRATE
     Indication: PAIN
     Route: 065
     Dates: start: 20180214, end: 20180215
  6. ORAMORPH? 20 MG/ML SOLUZIONE ORALE [Suspect]
     Active Substance: MORPHINE SULFATE
     Indication: PAIN
     Route: 065
  7. ZYLORIC 100 MG COMPRESSE [Concomitant]
     Route: 065
  8. LASIX [Concomitant]
     Active Substance: FUROSEMIDE
     Route: 048
  9. SINEMET [Concomitant]
     Active Substance: CARBIDOPA\LEVODOPA
     Dosage: 100 MG + 25 MG
     Route: 065

REACTIONS (3)
  - Hypotension [Recovered/Resolved]
  - Vomiting [Recovered/Resolved]
  - Sopor [Recovered/Resolved]

NARRATIVE: CASE EVENT DATE: 20180215
